FAERS Safety Report 7482827-5 (Version None)
Quarter: 2011Q2

REPORT INFORMATION
  Report Type: 
  Country: None (occurrence: None)
  Receive Date: 20110516
  Receipt Date: 20110310
  Transmission Date: 20111010
  Serious: Yes (Death, Other)
  Sender: FDA-Public Use
  Company Number: PHHY2011HU37496

PATIENT
  Age: 56 Year
  Sex: Male

DRUGS (1)
  1. FLUOROURACIL [Suspect]
     Indication: NEUROENDOCRINE TUMOUR

REACTIONS (2)
  - THROMBOCYTOPENIC PURPURA [None]
  - PNEUMONIA [None]
